FAERS Safety Report 5671422-6 (Version None)
Quarter: 2008Q1

REPORT INFORMATION
  Report Type: 
  Country: None (occurrence: None)
  Receive Date: 20080318
  Receipt Date: 20080306
  Transmission Date: 20080703
  Serious: Yes (Hospitalization)
  Sender: FDA-Public Use
  Company Number: US-PFIZER INC-2008023122

PATIENT
  Sex: Female
  Weight: 76 kg

DRUGS (12)
  1. CHANTIX [Suspect]
     Indication: SMOKING CESSATION THERAPY
  2. PREMARIN [Concomitant]
  3. CITALOPRAM HYDROBROMIDE [Concomitant]
  4. XANAX [Concomitant]
  5. VYTORIN [Concomitant]
  6. MIRAPEX [Concomitant]
     Indication: RESTLESS LEGS SYNDROME
  7. SEROQUEL [Concomitant]
  8. TRAZODONE HCL [Concomitant]
  9. OMEGA-3 MARINE TRIGLYCERIDES [Concomitant]
     Indication: BLOOD CHOLESTEROL
  10. PEPCID [Concomitant]
  11. DICYCLOMINE [Concomitant]
  12. AMITRIPTYLINE HCL [Concomitant]
     Indication: MIGRAINE

REACTIONS (3)
  - ABDOMINAL TENDERNESS [None]
  - DEHYDRATION [None]
  - DIARRHOEA [None]
